FAERS Safety Report 7014872-8 (Version None)
Quarter: 2010Q3

REPORT INFORMATION
  Report Type: 
  Country: None (occurrence: None)
  Receive Date: 20100927
  Receipt Date: 20091120
  Transmission Date: 20110219
  Serious: No
  Sender: FDA-Public Use
  Company Number: US-ASTRAZENECA-2009SE27923

PATIENT
  Sex: Female

DRUGS (1)
  1. ARIMIDEX [Suspect]
     Dosage: HALF IN THE AM AN HALF IN THE PM
     Route: 048

REACTIONS (2)
  - ADVERSE DRUG REACTION [None]
  - DRUG DOSE OMISSION [None]
